FAERS Safety Report 6145874-1 (Version None)
Quarter: 2009Q2

REPORT INFORMATION
  Report Type: 
  Country: None (occurrence: None)
  Receive Date: 20090407
  Receipt Date: 20090327
  Transmission Date: 20091009
  Serious: Yes (Other)
  Sender: FDA-Public Use
  Company Number: BR-ROCHE-624470

PATIENT

DRUGS (3)
  1. CEFTRIAXONE [Suspect]
     Dosage: INITIAL DOSE: 75 MG/KG BODY WEIGHT
     Route: 042
  2. CEFTRIAXONE [Suspect]
     Dosage: 50 MG/KG AT EACH 12 HOURS, MINIMUM PERIOD OF 21 DAYS
     Route: 042
  3. GENTAMICIN [Suspect]
     Indication: ANTI-INFECTIVE THERAPY
     Dosage: ROUTE: INTRAVENTRICULAR
     Route: 050

REACTIONS (4)
  - CNS VENTRICULITIS [None]
  - CONVULSION [None]
  - HYDROCEPHALUS [None]
  - PSYCHOMOTOR SKILLS IMPAIRED [None]
